FAERS Safety Report 18905950 (Version 3)
Quarter: 2022Q2

REPORT INFORMATION
  Report Type: Spontaneous
  Country: CO (occurrence: CO)
  Receive Date: 20210217
  Receipt Date: 20220624
  Transmission Date: 20220721
  Serious: Yes (Hospitalization, Other)
  Sender: FDA-Public Use
  Company Number: CO-VIIV HEALTHCARE LIMITED-CO2021AMR039924

PATIENT

DRUGS (3)
  1. DOLUTEGRAVIR [Suspect]
     Active Substance: DOLUTEGRAVIR
     Indication: Antiretroviral therapy
     Dosage: 50 MG, QD
     Route: 048
     Dates: start: 20200616, end: 20210106
  2. EMTRICITABINE\TENOFOVIR [Suspect]
     Active Substance: EMTRICITABINE\TENOFOVIR
     Indication: Antiretroviral therapy
     Dosage: 1 DF, QD (300/200 MG)
     Dates: start: 20200616
  3. ENALAPRIL [Concomitant]
     Active Substance: ENALAPRIL
     Indication: Hypertension
     Dosage: 1 DF, QD

REACTIONS (7)
  - Jaundice [Unknown]
  - Pruritus [Unknown]
  - Hyperbilirubinaemia [Unknown]
  - Cholestasis [Unknown]
  - Portal tract inflammation [Unknown]
  - Viral load increased [Unknown]
  - Toxicity to various agents [Unknown]

NARRATIVE: CASE EVENT DATE: 20200701
